FAERS Safety Report 5074391-5 (Version None)
Quarter: 2006Q3

REPORT INFORMATION
  Report Type: 
  Country: None (occurrence: None)
  Receive Date: 20060803
  Receipt Date: 20060721
  Transmission Date: 20061208
  Serious: Yes (Hospitalization, Other)
  Sender: FDA-Public Use
  Company Number: HQWYE510030JUN06

PATIENT
  Age: 53 Year
  Sex: Female

DRUGS (11)
  1. PREMARIN [Suspect]
     Indication: ATROPHIC VULVOVAGINITIS
     Dosage: 0.625 MG 1X PER 1 DAY, ORAL
     Route: 048
     Dates: start: 20060403, end: 20060524
  2. PREMARIN [Suspect]
     Indication: ATROPHIC VULVOVAGINITIS
     Dosage: 0.625 MG 1X PER 1 DAY, ORAL
     Route: 048
     Dates: start: 20060612, end: 20060630
  3. RASPJINE (AZELASTINE HYDROCHLORIDE) [Concomitant]
  4. CLARITHROMYCIN [Concomitant]
  5. MUCODYNE (CARBOCISTEINE) [Concomitant]
  6. ASVERIN (TIPEPIDINE HIBENZATE) [Concomitant]
  7. GLORIAMIN (AZULENE SODIUM SULFONATE/LEVOGLUTAMIDE) [Concomitant]
  8. MEQUITAZINE (MEQUITAZINE) [Concomitant]
  9. AMOXICILLIN [Concomitant]
  10. MEFENAMIC ACID [Concomitant]
  11. LYSOZYME HYDROCHLORIDE (LYSOZYME HYDROCHLORIDE) [Concomitant]

REACTIONS (1)
  - EOSINOPHILIC PNEUMONIA [None]
